FAERS Safety Report 12065736 (Version 2)
Quarter: 2016Q3

REPORT INFORMATION
  Report Type: Spontaneous
  Country: US (occurrence: US)
  Receive Date: 20160211
  Receipt Date: 20160706
  Transmission Date: 20161109
  Serious: No
  Sender: FDA-Public Use
  Company Number: US-PFIZER INC-2016040161

PATIENT
  Age: 3 Year
  Sex: Female
  Weight: 11 kg

DRUGS (2)
  1. CHILDRENS ADVIL [Suspect]
     Active Substance: IBUPROFEN
     Dosage: 5 ML, UNK
  2. CHILDRENS ADVIL [Suspect]
     Active Substance: IBUPROFEN
     Indication: PYREXIA
     Dosage: 3.75 ML, EVERY 4 HRS

REACTIONS (4)
  - Nausea [Unknown]
  - Pyrexia [Unknown]
  - Inappropriate schedule of drug administration [Unknown]
  - Vomiting [Unknown]

NARRATIVE: CASE EVENT DATE: 20160123
